FAERS Safety Report 5358603-6 (Version None)
Quarter: 2007Q2

REPORT INFORMATION
  Report Type: 
  Country: None (occurrence: None)
  Receive Date: 20070615
  Receipt Date: 20070612
  Transmission Date: 20071010
  Serious: Yes (Other)
  Sender: FDA-Public Use
  Company Number: PHEH2007US07027

PATIENT
  Age: 54 Year
  Sex: Female

DRUGS (2)
  1. TEKTURNA [Suspect]
     Indication: HYPERTENSION
     Dosage: 150MG, UNK
     Dates: start: 20070501, end: 20070504
  2. ACE INHIBITOR NOS [Concomitant]
     Dates: end: 20070501

REACTIONS (8)
  - BURNING SENSATION [None]
  - DYSPHAGIA [None]
  - DYSPNOEA [None]
  - GLOSSODYNIA [None]
  - ODYNOPHAGIA [None]
  - PHARYNGOLARYNGEAL PAIN [None]
  - STRIDOR [None]
  - TONGUE OEDEMA [None]
